FAERS Safety Report 11986294 (Version 1)
Quarter: 2016Q1

REPORT INFORMATION
  Report Type: Spontaneous
  Country: US (occurrence: None)
  Receive Date: 20160201
  Receipt Date: 20160201
  Transmission Date: 20160526
  Serious: No
  Sender: FDA-Public Use
  Company Number: None

PATIENT

DRUGS (2)
  1. ALBUMIN HUMAN [Suspect]
     Active Substance: ALBUMIN (HUMAN)
     Dosage: DOSAGE FORM: SOLUTION  CONTAINER SIZE 50 ML?
     Route: 042
  2. ALBUMIN HUMAN [Suspect]
     Active Substance: ALBUMIN (HUMAN)
     Dosage: DOSAGE FORM: SOLUTION  CONTAINER SIZE: 100 ML
     Route: 042

REACTIONS (2)
  - Product label confusion [None]
  - Product name confusion [None]
